FAERS Safety Report 18199497 (Version 1)
Quarter: 2020Q3

REPORT INFORMATION
  Report Type: Spontaneous
  Country: DE (occurrence: DE)
  Receive Date: 20200826
  Receipt Date: 20200826
  Transmission Date: 20201103
  Serious: Yes (Hospitalization)
  Sender: FDA-Public Use
  Company Number: DE-DEXPHARM-20200764

PATIENT
  Age: 54 Year
  Sex: Male

DRUGS (6)
  1. FORMATRIS [Concomitant]
     Active Substance: FORMOTEROL FUMARATE
     Dosage: 1?0?1?0
  2. VALSARTAN. [Concomitant]
     Active Substance: VALSARTAN
     Dosage: 40 MG, 1?0?1?0
  3. NOVOPULMON [Concomitant]
     Active Substance: BUDESONIDE
     Dosage: 1?0?1?0
  4. VENLAFAXINE [Suspect]
     Active Substance: VENLAFAXINE HYDROCHLORIDE
     Dosage: 75 MG, 1?0?0?0
  5. SALBUTAMOL [Concomitant]
     Active Substance: ALBUTEROL
     Dosage: AS NEEDED
  6. HYDROCHLOROTHIAZID [Concomitant]
     Active Substance: HYDROCHLOROTHIAZIDE
     Dosage: 12.5 MG, 1?0?1?0

REACTIONS (3)
  - Dizziness [Recovered/Resolved]
  - Circulatory collapse [Recovered/Resolved]
  - Epistaxis [Recovered/Resolved]
